FAERS Safety Report 8908180 (Version 1)
Quarter: 2012Q4

REPORT INFORMATION
  Report Type: 
  Country: NL (occurrence: NL)
  Receive Date: 20121114
  Receipt Date: 20121114
  Transmission Date: 20130627
  Serious: Yes (Hospitalization)
  Sender: FDA-Public Use
  Company Number: NL-TEVA-368159ISR

PATIENT
  Sex: Male
  Weight: 76 kg

DRUGS (6)
  1. HYDROCHLOORTHIAZIDE [Suspect]
     Indication: HYPERTENSION
     Dosage: 1 time per day 1 piece (s)
     Route: 048
     Dates: start: 2010
  2. CAPECITABINE [Interacting]
     Indication: COLON CANCER
     Dosage: additional info: 2dd2000mg capecitabine since 16/10 and 1x 250mg oxaliplatin
     Route: 048
     Dates: start: 20121016
  3. DICLOFENAC [Interacting]
     Indication: PAIN
     Dosage: additional info: probably 75mg
     Route: 030
     Dates: start: 20121020, end: 20121020
  4. OXALIPLATINE [Interacting]
     Indication: COLON CANCER
     Dosage: additional info: 2dd2000mg capecitabine since 16/10 and 1x 250mg oxaliplatin
     Route: 042
     Dates: start: 20121016
  5. THYRAX DUOTAB TABLET 0,100MG [Concomitant]
     Dosage: 1 time per day 2 piece (s)
     Route: 048
     Dates: start: 1952
  6. SIMVASTATINE TABLET 40MG [Concomitant]
     Dosage: 1 time per day 1 piece (s)
     Route: 048
     Dates: start: 2010

REACTIONS (2)
  - Renal failure acute [Recovering/Resolving]
  - Drug interaction [Unknown]
